FAERS Safety Report 7522831-1 (Version None)
Quarter: 2011Q2

REPORT INFORMATION
  Report Type: 
  Country: None (occurrence: None)
  Receive Date: 20110603
  Receipt Date: 20110519
  Transmission Date: 20111010
  Serious: Yes (Hospitalization)
  Sender: FDA-Public Use
  Company Number: PHHY2011GB46152

PATIENT
  Age: 5 Year
  Sex: Male

DRUGS (12)
  1. VALPROATE SODIUM [Suspect]
     Indication: GRAND MAL CONVULSION
     Dosage: UNK UKN, UNK
  2. GENTAMICIN [Concomitant]
     Indication: GRAND MAL CONVULSION
     Dosage: UNK UKN, UNK
  3. PARALDEHYDE [Concomitant]
     Indication: GRAND MAL CONVULSION
     Dosage: UNK UKN, UNK
  4. DIAZEPAM [Concomitant]
     Indication: GRAND MAL CONVULSION
  5. CLOBAZAM [Suspect]
     Indication: GRAND MAL CONVULSION
  6. CLONAZEPAM [Concomitant]
     Indication: GRAND MAL CONVULSION
     Dosage: UNK UKN, UNK
  7. ERYTHROMYCIN [Concomitant]
     Indication: GRAND MAL CONVULSION
     Dosage: UNK UKN, UNK
  8. PHENYTOIN [Concomitant]
     Indication: GRAND MAL CONVULSION
     Dosage: UNK UKN, UNK
  9. CEFOTAXIME [Concomitant]
     Indication: GRAND MAL CONVULSION
     Dosage: UNK UKN, UNK
  10. LAMOTRIGINE [Suspect]
     Indication: GRAND MAL CONVULSION
  11. THIOPENTAL SODIUM [Concomitant]
     Indication: GRAND MAL CONVULSION
  12. TAZOCIN [Concomitant]
     Indication: GRAND MAL CONVULSION
     Dosage: UNK UKN, UNK

REACTIONS (9)
  - CEREBRAL ATROPHY [None]
  - HYPOXIA [None]
  - APHASIA [None]
  - FEBRILE CONVULSION [None]
  - PNEUMONIA MYCOPLASMAL [None]
  - ENCEPHALOPATHY [None]
  - DYSTONIA [None]
  - BRAIN OEDEMA [None]
  - ATONIC SEIZURES [None]
